FAERS Safety Report 6272016-4 (Version None)
Quarter: 2009Q3

REPORT INFORMATION
  Report Type: 
  Country: None (occurrence: None)
  Receive Date: 20090717
  Receipt Date: 20090716
  Transmission Date: 20100115
  Serious: Yes (Death, Life-Threatening, Hospitalization)
  Sender: FDA-Public Use
  Company Number: A0764159A

PATIENT
  Age: 20 Year
  Sex: Female

DRUGS (9)
  1. ADVAIR HFA [Suspect]
     Indication: ASTHMA
     Dosage: 1PUFF TWICE PER DAY
     Route: 055
     Dates: end: 20050805
  2. SINGULAIR [Concomitant]
  3. PEPCID [Concomitant]
  4. ALBUTEROL [Concomitant]
  5. UNIPHYL [Concomitant]
  6. PROTONIX [Concomitant]
  7. COMBIVENT [Concomitant]
  8. PREDNISONE [Concomitant]
  9. ALLEGRA [Concomitant]

REACTIONS (3)
  - ACUTE RESPIRATORY FAILURE [None]
  - ASTHMA [None]
  - STATUS ASTHMATICUS [None]
